FAERS Safety Report 20571114 (Version 1)
Quarter: 2022Q1

REPORT INFORMATION
  Report Type: Spontaneous
  Country: US (occurrence: US)
  Receive Date: 20220309
  Receipt Date: 20220309
  Transmission Date: 20220424
  Serious: No
  Sender: FDA-Public Use
  Company Number: US-PHARMAESSENTIA CORPORATION-US-2022-PEC-000500

PATIENT

DRUGS (1)
  1. BESREMI [Suspect]
     Active Substance: ROPEGINTERFERON ALFA-2B-NJFT
     Indication: Polycythaemia vera
     Dosage: 100 MICROGRAM, Q2W
     Route: 058
     Dates: start: 20220128

REACTIONS (6)
  - Gingival disorder [Recovering/Resolving]
  - Exostosis [Recovering/Resolving]
  - Blood test abnormal [Recovering/Resolving]
  - Gingival pain [Recovering/Resolving]
  - Gingival bleeding [Recovering/Resolving]
  - Gingival swelling [Recovering/Resolving]
